FAERS Safety Report 9303993 (Version 1)
Quarter: 2013Q2

REPORT INFORMATION
  Report Type: Spontaneous
  Country: TR (occurrence: TR)
  Receive Date: 20130522
  Receipt Date: 20130522
  Transmission Date: 20140414
  Serious: Yes (Other)
  Sender: FDA-Public Use
  Company Number: PHHY2013TR050414

PATIENT
  Age: 42 Year
  Sex: Male

DRUGS (4)
  1. CARVEDILOL [Suspect]
     Indication: MYOCARDIAL INFARCTION
  2. PERINDOPRIL [Interacting]
     Indication: MYOCARDIAL INFARCTION
  3. BEE VENOM//APIS MELLIFICA [Interacting]
     Dosage: 1 ML, UNK
  4. BEE VENOM//APIS MELLIFICA [Interacting]
     Dosage: 0.1 ML, UNK

REACTIONS (5)
  - Anaphylactic reaction [Recovered/Resolved]
  - Pruritus generalised [Recovered/Resolved]
  - Loss of consciousness [Recovered/Resolved]
  - Hypotension [Recovered/Resolved]
  - Drug interaction [Unknown]
